FAERS Safety Report 4346742-8 (Version None)
Quarter: 2004Q1

REPORT INFORMATION
  Report Type: 
  Country: None (occurrence: None)
  Receive Date: 20040329
  Receipt Date: 20040122
  Transmission Date: 20041129
  Serious: No
  Sender: FDA-Public Use
  Company Number: USA040157353

PATIENT
  Age: 62 Year
  Sex: Female
  Weight: 65 kg

DRUGS (2)
  1. STRATTERA [Suspect]
     Indication: ATTENTION DEFICIT/HYPERACTIVITY DISORDER
     Dosage: 30 MG/ IN THE EVENING
     Dates: start: 20040101
  2. PROZAC [Concomitant]

REACTIONS (4)
  - DIARRHOEA [None]
  - GASTROENTERITIS VIRAL [None]
  - NAUSEA [None]
  - VOMITING [None]
